FAERS Safety Report 4811147-X (Version None)
Quarter: 2005Q4

REPORT INFORMATION
  Report Type: 
  Country: None (occurrence: None)
  Receive Date: 20051027
  Receipt Date: 20051021
  Transmission Date: 20060501
  Serious: Yes (Death)
  Sender: FDA-Public Use
  Company Number: JP-JPN-A20052550

PATIENT
  Sex: Male
  Weight: 40 kg

DRUGS (1)
  1. FLOLAN [Suspect]
     Indication: COLLAGEN DISORDER
     Route: 042
     Dates: start: 20050603, end: 20050722

REACTIONS (1)
  - PNEUMONIA ASPIRATION [None]
